FAERS Safety Report 23939061 (Version 1)
Quarter: 2024Q2

REPORT INFORMATION
  Report Type: Spontaneous
  Country: DZ (occurrence: DZ)
  Receive Date: 20240604
  Receipt Date: 20240604
  Transmission Date: 20240716
  Serious: Yes (Hospitalization)
  Sender: FDA-Public Use
  Company Number: DZ-STRIDES ARCOLAB LIMITED-2024SP006403

PATIENT
  Age: 2 Year
  Sex: Male

DRUGS (8)
  1. PHENOBARBITAL [Suspect]
     Active Substance: PHENOBARBITAL
     Indication: Seizure
     Dosage: 50 MILLIGRAM, QD
     Route: 065
  2. METRONIDAZOLE [Suspect]
     Active Substance: METRONIDAZOLE
     Indication: Antibiotic therapy
     Dosage: 150 MILLIGRAM, EVERY 8 HRS
     Route: 065
  3. RANITIDINE [Suspect]
     Active Substance: RANITIDINE
     Indication: Antacid therapy
     Dosage: 10 MILLIGRAM, EVERY 8 HOURS
     Route: 065
  4. DIAZEPAM [Suspect]
     Active Substance: DIAZEPAM
     Indication: Chemical poisoning
     Dosage: UNK
     Route: 065
  5. CEFOTAXIME [Suspect]
     Active Substance: CEFOTAXIME SODIUM
     Indication: Antibiotic therapy
     Dosage: 500 MILLIGRAM, EVERY 6 HRS
     Route: 065
  6. ACETAMINOPHEN [Concomitant]
     Active Substance: ACETAMINOPHEN
     Indication: Pyrexia
     Dosage: 150 MILLIGRAM, EVERY 6 HRS
     Route: 065
  7. ATROPINE [Concomitant]
     Active Substance: ATROPINE\ATROPINE SULFATE
     Indication: Chemical poisoning
     Dosage: UNK
     Route: 065
  8. PRALIDOXIME [Concomitant]
     Active Substance: PRALIDOXIME
     Indication: Chemical poisoning
     Dosage: UNK
     Route: 065

REACTIONS (3)
  - Condition aggravated [Recovered/Resolved]
  - Drug ineffective [Unknown]
  - Off label use [Unknown]
